FAERS Safety Report 10226782 (Version 1)
Quarter: 2014Q2

REPORT INFORMATION
  Report Type: Spontaneous
  Country: MY (occurrence: MY)
  Receive Date: 20140610
  Receipt Date: 20140610
  Transmission Date: 20141212
  Serious: Yes (Other)
  Sender: FDA-Public Use
  Company Number: MY-ROCHE-1412698

PATIENT
  Sex: Male

DRUGS (6)
  1. VESANOID [Suspect]
     Indication: ACUTE PROMYELOCYTIC LEUKAEMIA
     Route: 048
     Dates: start: 20140302
  2. CYTARABINE [Concomitant]
  3. GRANISETRON [Concomitant]
     Route: 065
  4. CO-TRIMOXAZOLE [Concomitant]
  5. DAUNORUBICIN [Concomitant]
  6. ALLOPURINOL [Concomitant]
     Route: 065

REACTIONS (5)
  - Pyrexia [Recovered/Resolved]
  - Hypotension [Recovered/Resolved]
  - Tachypnoea [Recovered/Resolved]
  - Tachycardia [Recovered/Resolved]
  - Weight decreased [Recovered/Resolved]
